FAERS Safety Report 22181521 (Version 2)
Quarter: 2023Q2

REPORT INFORMATION
  Report Type: Report from Study
  Country: US (occurrence: US)
  Receive Date: 20230406
  Receipt Date: 20230425
  Transmission Date: 20230722
  Serious: Yes (Hospitalization)
  Sender: FDA-Public Use
  Company Number: US-ABBVIE-4318726

PATIENT
  Age: 47 Year
  Sex: Female
  Weight: 72.574 kg

DRUGS (2)
  1. RINVOQ [Suspect]
     Active Substance: UPADACITINIB
     Indication: Psoriatic arthropathy
     Dosage: FORM STRENGTH: 15 MG
     Route: 048
     Dates: start: 202206
  2. RINVOQ [Suspect]
     Active Substance: UPADACITINIB
     Indication: Psoriatic arthropathy
     Dosage: STRENGTH: 15 MG
     Route: 048
     Dates: start: 20230105

REACTIONS (6)
  - Meniscus injury [Recovering/Resolving]
  - Rhinitis [Recovered/Resolved]
  - Aphonia [Recovered/Resolved]
  - Sinusitis [Recovered/Resolved]
  - Upper-airway cough syndrome [Recovered/Resolved]
  - Rhinorrhoea [Recovered/Resolved]

NARRATIVE: CASE EVENT DATE: 20221101
